FAERS Safety Report 15125135 (Version 2)
Quarter: 2018Q3

REPORT INFORMATION
  Report Type: Spontaneous
  Country: US (occurrence: US)
  Receive Date: 20180710
  Receipt Date: 20180802
  Transmission Date: 20181010
  Serious: No
  Sender: FDA-Public Use
  Company Number: US-BAYER-2018-127637

PATIENT
  Age: 7 Year
  Sex: Male
  Weight: 32 kg

DRUGS (3)
  1. CLARITIN [Suspect]
     Active Substance: LORATADINE
     Indication: ALLERGIC RESPIRATORY SYMPTOM
     Dosage: 2 DF, ONCE
     Route: 048
     Dates: start: 20180704, end: 20180704
  2. SINGULAIR [Concomitant]
     Active Substance: MONTELUKAST SODIUM
  3. CLARITIN [Suspect]
     Active Substance: LORATADINE
     Indication: NASOPHARYNGITIS

REACTIONS (3)
  - Product taste abnormal [None]
  - Extra dose administered [Unknown]
  - Product colour issue [None]

NARRATIVE: CASE EVENT DATE: 20180704
